FAERS Safety Report 5510136-X (Version None)
Quarter: 2007Q4

REPORT INFORMATION
  Report Type: 
  Country: None (occurrence: None)
  Receive Date: 20071106
  Receipt Date: 20071102
  Transmission Date: 20080405
  Serious: Yes (Death, Hospitalization)
  Sender: FDA-Public Use
  Company Number: FR-RB-008363-07

PATIENT
  Age: 35 Year
  Sex: Male

DRUGS (3)
  1. SUBUTEX [Suspect]
     Indication: DRUG USE FOR UNKNOWN INDICATION
     Route: 065
     Dates: start: 20050101, end: 20060301
  2. SUBUTEX [Suspect]
     Route: 065
     Dates: start: 20060301, end: 20060501
  3. SUBUTEX [Suspect]
     Route: 065
     Dates: start: 20060501

REACTIONS (10)
  - CARDIO-RESPIRATORY ARREST [None]
  - DIARRHOEA [None]
  - DISSEMINATED INTRAVASCULAR COAGULATION [None]
  - GASTROINTESTINAL MOTILITY DISORDER [None]
  - HEPATOCELLULAR DAMAGE [None]
  - HYPERTHERMIA [None]
  - HYPOGLYCAEMIA [None]
  - PERITONEAL EFFUSION [None]
  - PNEUMATOSIS INTESTINALIS [None]
  - VOMITING [None]
